FAERS Safety Report 7258620-5 (Version None)
Quarter: 2011Q1

REPORT INFORMATION
  Report Type: 
  Country: None (occurrence: None)
  Receive Date: 20110129
  Receipt Date: 20100621
  Transmission Date: 20110831
  Serious: Yes (Hospitalization)
  Sender: FDA-Public Use
  Company Number: US-ABBOTT-09P-163-0586531-00

PATIENT
  Sex: Female
  Weight: 82.174 kg

DRUGS (9)
  1. ZYPREXA [Concomitant]
     Indication: BIPOLAR I DISORDER
     Route: 048
  2. HUMIRA [Suspect]
     Dates: start: 20090720
  3. LITHIUM CARBONATE [Concomitant]
     Indication: BIPOLAR I DISORDER
     Route: 048
  4. CLONAZEPAM [Concomitant]
     Indication: BIPOLAR I DISORDER
     Route: 048
  5. HUMIRA [Suspect]
     Indication: CROHN'S DISEASE
     Route: 058
     Dates: start: 20090427, end: 20090427
  6. HUMIRA [Suspect]
     Route: 058
     Dates: start: 20090706, end: 20090706
  7. HUMIRA [Suspect]
     Dates: start: 20080101
  8. ZOLOFT [Concomitant]
     Indication: BIPOLAR I DISORDER
     Route: 048
  9. MULTIVITAMIN [Concomitant]
     Indication: VITAMIN SUPPLEMENTATION

REACTIONS (3)
  - PHARYNGITIS [None]
  - PERINEAL INFECTION [None]
  - STOMATITIS [None]
